FAERS Safety Report 21749351 (Version 2)
Quarter: 2022Q4

REPORT INFORMATION
  Report Type: Spontaneous
  Country: IN (occurrence: IN)
  Receive Date: 20221219
  Receipt Date: 20221227
  Transmission Date: 20230113
  Serious: Yes (Other)
  Sender: FDA-Public Use
  Company Number: IN-PFIZER INC-2018479171

PATIENT
  Age: 48 Year
  Sex: Male

DRUGS (3)
  1. SUTENT [Suspect]
     Active Substance: SUNITINIB MALATE
     Indication: Metastatic renal cell carcinoma
     Dosage: 4 CAPSULES EACH 12.5 MG, CYCLIC (EVERYDAY FOR 14 DAYS ON AND NEXT 7 DAYS OFF)
     Dates: start: 201701
  2. SUTENT [Suspect]
     Active Substance: SUNITINIB MALATE
     Dosage: 50 MG, ONCE DAILY, 2 WEEKS ON AND 3 WEEKS OFF
     Route: 048
     Dates: start: 20180130, end: 201905
  3. SUTENT [Suspect]
     Active Substance: SUNITINIB MALATE
     Dosage: UNK
     Route: 048
     Dates: start: 20220128

REACTIONS (7)
  - Myelosuppression [Recovered/Resolved]
  - Haemoglobin decreased [Unknown]
  - White blood cell count decreased [Unknown]
  - Palmar-plantar erythrodysaesthesia syndrome [Recovered/Resolved]
  - Neoplasm progression [Unknown]
  - Off label use [Unknown]
  - Product use issue [Unknown]
